FAERS Safety Report 10447335 (Version 1)
Quarter: 2014Q3

REPORT INFORMATION
  Report Type: Spontaneous
  Country: US (occurrence: None)
  Receive Date: 20140910
  Receipt Date: 20140910
  Transmission Date: 20150326
  Serious: No
  Sender: FDA-Public Use
  Company Number: None

PATIENT
  Sex: Male

DRUGS (2)
  1. AUGMENTIN [Suspect]
     Active Substance: AMOXICILLIN\CLAVULANATE POTASSIUM
  2. DIGOXIN. [Suspect]
     Active Substance: DIGOXIN

REACTIONS (2)
  - Wrong drug administered [None]
  - Drug prescribing error [None]

NARRATIVE: CASE EVENT DATE: 2014
